FAERS Safety Report 5929450-9 (Version None)
Quarter: 2008Q4

REPORT INFORMATION
  Report Type: 
  Country: None (occurrence: None)
  Receive Date: 20081024
  Receipt Date: 20081017
  Transmission Date: 20090506
  Serious: Yes (Hospitalization, Other)
  Sender: FDA-Public Use
  Company Number: ES-ELI_LILLY_AND_COMPANY-ES200809005296

PATIENT
  Age: 62 Year
  Sex: Female

DRUGS (6)
  1. PROZAC [Suspect]
     Indication: DEPRESSION
     Dosage: 20 MG, DAILY (1/D)
     Route: 048
     Dates: start: 20060101, end: 20080821
  2. SIMVASTATIN [Concomitant]
     Indication: DYSLIPIDAEMIA
     Dosage: 10 MG, DAILY (1/D)
     Route: 048
  3. METFORMIN HCL [Concomitant]
     Indication: DIABETES MELLITUS
     Dosage: 1700 MG, 2/D
     Route: 048
  4. DIAZEPAN [Concomitant]
     Dosage: 5 MG, DAILY (1/D)
     Route: 048
  5. LEVEMIR [Concomitant]
     Indication: DIABETES MELLITUS
     Dosage: 20 IU, DAILY (1/D)
     Route: 058
  6. CLORAZEPATE DIPOTASSIUM [Concomitant]
     Dosage: 10 MBQ, 2/D
     Route: 048

REACTIONS (2)
  - INAPPROPRIATE ANTIDIURETIC HORMONE SECRETION [None]
  - SMALL CELL CARCINOMA [None]
